FAERS Safety Report 9850483 (Version 3)
Quarter: 2014Q2

REPORT INFORMATION
  Report Type: Report from Study
  Country: JP (occurrence: JP)
  Receive Date: 20140128
  Receipt Date: 20140521
  Transmission Date: 20141212
  Serious: Yes (Death, Life-Threatening, Hospitalization)
  Sender: FDA-Public Use
  Company Number: JP-ABBVIE-14P-087-1195293-00

PATIENT
  Age: 71 Year
  Sex: Female
  Weight: 39.5 kg

DRUGS (8)
  1. LIPACREON GRANULES 300MG SACHET [Suspect]
     Indication: PANCREATIC INSUFFICIENCY
     Route: 048
     Dates: start: 20130329, end: 20131117
  2. RABEPRAZOLE SODIUM [Concomitant]
     Indication: DISEASE COMPLICATION
     Route: 048
  3. RABEPRAZOLE SODIUM [Concomitant]
     Indication: GASTROOESOPHAGEAL REFLUX DISEASE
  4. TS-1 [Concomitant]
     Indication: DISEASE COMPLICATION
     Route: 048
     Dates: end: 20131118
  5. DAIKENCHUUTOU [Concomitant]
     Indication: DISEASE COMPLICATION
     Route: 048
     Dates: end: 20131118
  6. FUROSEMIDE [Concomitant]
     Indication: DISEASE COMPLICATION
     Route: 048
     Dates: end: 20131118
  7. SPIRONOLACTONE [Concomitant]
     Indication: DISEASE COMPLICATION
     Route: 048
     Dates: end: 20131118
  8. GEMCITABINE HYDROCHLORIDE [Concomitant]
     Indication: DISEASE COMPLICATION
     Route: 050
     Dates: end: 20131028

REACTIONS (1)
  - Hepatic failure [Fatal]
